FAERS Safety Report 7134038-0 (Version None)
Quarter: 2010Q4

REPORT INFORMATION
  Report Type: 
  Country: None (occurrence: None)
  Receive Date: 20101203
  Receipt Date: 20101129
  Transmission Date: 20110411
  Serious: Yes (Hospitalization)
  Sender: FDA-Public Use
  Company Number: JP-BRISTOL-MYERS SQUIBB COMPANY-15414428

PATIENT
  Age: 62 Year
  Sex: Female

DRUGS (7)
  1. ABATACEPT [Suspect]
     Indication: RHEUMATOID ARTHRITIS
     Route: 041
     Dates: start: 20071219
  2. METOLATE [Concomitant]
     Indication: RHEUMATOID ARTHRITIS
     Dosage: TABLET, STARTED PRIOR TO OBTAINING INFORMED CONSENT
     Route: 048
  3. GASTER D [Concomitant]
     Indication: PROPHYLAXIS
     Dosage: TABLET, STARTED PRIOR TO OBTAINING INFORMED CONSENT
     Route: 048
  4. PREDNISOLONE [Concomitant]
     Indication: RHEUMATOID ARTHRITIS
     Dosage: TABLET
     Route: 048
     Dates: start: 20080213
  5. BENET [Concomitant]
     Indication: OSTEOPOROSIS
     Dosage: TABLET, STARTED PRIOR TO OBTAINING INFORMED CONSENT
     Route: 048
  6. LOXONIN [Concomitant]
     Indication: RHEUMATOID ARTHRITIS
     Dosage: TABLET, STARTED PRIOR TO OBTAINING INFORMED CONSENT
     Route: 048
  7. FOLIAMIN [Concomitant]
     Indication: PROPHYLAXIS
     Dosage: TABLET
     Route: 048
     Dates: start: 20101024

REACTIONS (3)
  - C-REACTIVE PROTEIN INCREASED [None]
  - SINUSITIS [None]
  - VERTIGO [None]
